FAERS Safety Report 7714681-8 (Version None)
Quarter: 2011Q3

REPORT INFORMATION
  Report Type: 
  Country: None (occurrence: None)
  Receive Date: 20110829
  Receipt Date: 20110819
  Transmission Date: 20111222
  Serious: Yes (Other)
  Sender: FDA-Public Use
  Company Number: FR-JNJFOC-20110701760

PATIENT
  Sex: Female

DRUGS (1)
  1. HALDOL [Suspect]
     Indication: NAUSEA
     Route: 042
     Dates: start: 20110624, end: 20110624

REACTIONS (3)
  - OFF LABEL USE [None]
  - ALTERED STATE OF CONSCIOUSNESS [None]
  - INCORRECT ROUTE OF DRUG ADMINISTRATION [None]
